FAERS Safety Report 14590661 (Version 1)
Quarter: 2018Q1

REPORT INFORMATION
  Report Type: Other
  Country: FI (occurrence: FI)
  Receive Date: 20180302
  Receipt Date: 20180302
  Transmission Date: 20180509
  Serious: Yes (Other)
  Sender: FDA-Public Use
  Company Number: FI-TAKEDA-2018TUS005236

PATIENT
  Age: 40 Year
  Sex: Female

DRUGS (2)
  1. HUMIRA [Suspect]
     Active Substance: ADALIMUMAB
     Indication: PRODUCT USED FOR UNKNOWN INDICATION
     Dosage: 40 MG, 1/WEEK
     Route: 058
     Dates: start: 20140101, end: 20161001
  2. ENTYVIO [Suspect]
     Active Substance: VEDOLIZUMAB
     Indication: PRODUCT USED FOR UNKNOWN INDICATION
     Dosage: UNK
     Route: 065

REACTIONS (12)
  - Bursitis [Unknown]
  - Peripheral coldness [Unknown]
  - Arthralgia [Recovering/Resolving]
  - Hypothyroidism [Unknown]
  - Long-chain acyl-coenzyme A dehydrogenase deficiency [Unknown]
  - Endometriosis [Unknown]
  - Butterfly rash [Not Recovered/Not Resolved]
  - Back pain [Unknown]
  - Joint swelling [Unknown]
  - Muscular weakness [Unknown]
  - Lupus-like syndrome [Recovering/Resolving]
  - Solar dermatitis [Unknown]

NARRATIVE: CASE EVENT DATE: 20160101
